FAERS Safety Report 7981160-2 (Version None)
Quarter: 2011Q4

REPORT INFORMATION
  Report Type: 
  Country: None (occurrence: None)
  Receive Date: 20111212
  Receipt Date: 20111205
  Transmission Date: 20120403
  Serious: Yes (Other)
  Sender: FDA-Public Use
  Company Number: GER/GER/11/0022240

PATIENT
  Age: 34 Year
  Sex: Female

DRUGS (3)
  1. BERLINSULIN H BASAL (INSULIN HUMAN INJECTION, ISOPHANE) [Concomitant]
  2. LAMOTRIGINE [Suspect]
     Indication: EPILEPSY
     Dosage: 50 MG, 1 D, ORAL
     Route: 048
  3. BERLINSULIN H NORMAL (INSULIN HUMAN) [Concomitant]

REACTIONS (2)
  - CAESAREAN SECTION [None]
  - MATERNAL EXPOSURE DURING PREGNANCY [None]
